FAERS Safety Report 12738538 (Version 3)
Quarter: 2018Q2

REPORT INFORMATION
  Report Type: Spontaneous
  Country: US (occurrence: US)
  Receive Date: 20160912
  Receipt Date: 20180515
  Transmission Date: 20180711
  Serious: No
  Sender: FDA-Public Use
  Company Number: US-SA-2016SA139771

PATIENT
  Sex: Female

DRUGS (5)
  1. PRANDIN [Suspect]
     Active Substance: REPAGLINIDE
     Route: 065
  2. TOUJEO [Suspect]
     Active Substance: INSULIN GLARGINE
     Route: 065
     Dates: start: 20160407
  3. VICTOZA [Suspect]
     Active Substance: LIRAGLUTIDE
     Route: 065
  4. SOLOSTAR [Concomitant]
     Active Substance: DEVICE
  5. METFORMIN [Suspect]
     Active Substance: METFORMIN HYDROCHLORIDE
     Route: 065

REACTIONS (3)
  - Weight decreased [Unknown]
  - Tremor [Unknown]
  - Diarrhoea [Unknown]
